FAERS Safety Report 4773350-7 (Version None)
Quarter: 2005Q3

REPORT INFORMATION
  Report Type: 
  Country: None (occurrence: None)
  Receive Date: 20050916
  Receipt Date: 20050907
  Transmission Date: 20060218
  Serious: Yes (Death)
  Sender: FDA-Public Use
  Company Number: 2005125801

PATIENT
  Age: 47 Year
  Sex: Female

DRUGS (4)
  1. ZOLOFT [Suspect]
     Indication: ANXIETY
     Dosage: 200 MG (100 MG, 2 IN 1 D)
     Dates: end: 20050101
  2. ZOLOFT [Suspect]
     Indication: DEPRESSION
     Dosage: 200 MG (100 MG, 2 IN 1 D)
     Dates: end: 20050101
  3. METHADONE HCL [Concomitant]
  4. VALIUM [Suspect]

REACTIONS (1)
  - DRUG TOXICITY [None]
